FAERS Safety Report 7878667-5 (Version None)
Quarter: 2011Q4

REPORT INFORMATION
  Report Type: 
  Country: None (occurrence: None)
  Receive Date: 20111018
  Receipt Date: 20110427
  Transmission Date: 20120403
  Serious: Yes (Other)
  Sender: FDA-Public Use
  Company Number: 2011P1004749

PATIENT
  Age: 48 Year
  Sex: Male
  Weight: 82.5547 kg

DRUGS (8)
  1. FENTANYL [Suspect]
     Indication: MIGRAINE
     Dosage: 1 PATCH;Q3D;TDER
     Route: 062
     Dates: start: 20101126, end: 20101207
  2. FENTANYL [Suspect]
     Indication: NECK PAIN
     Dosage: 1 PATCH;Q3D;TDER
     Route: 062
     Dates: start: 20101126, end: 20101207
  3. FENTANYL [Suspect]
     Indication: TESTICULAR PAIN
     Dosage: 1 PATCH;Q3D;TDER
     Route: 062
     Dates: start: 20101126, end: 20101207
  4. PEXEVA [Concomitant]
  5. MS CONTIN [Concomitant]
  6. KLONOPIN [Concomitant]
  7. BUSPAR [Concomitant]
  8. NORCO [Concomitant]

REACTIONS (2)
  - DYSPNOEA [None]
  - DRUG INEFFECTIVE [None]
